FAERS Safety Report 16193006 (Version 2)
Quarter: 2019Q2

REPORT INFORMATION
  Report Type: Spontaneous
  Country: TW (occurrence: TW)
  Receive Date: 20190413
  Receipt Date: 20190511
  Transmission Date: 20190711
  Serious: Yes (Hospitalization)
  Sender: FDA-Public Use
  Company Number: TW-ROCHE-2301408

PATIENT
  Age: 65 Year
  Sex: Female

DRUGS (2)
  1. HERCEPTIN [Suspect]
     Active Substance: TRASTUZUMAB
     Indication: BREAST CANCER
     Route: 042
     Dates: start: 20181120, end: 20181120
  2. HERCEPTIN [Suspect]
     Active Substance: TRASTUZUMAB
     Indication: BREAST CANCER
     Route: 058
     Dates: start: 20181225

REACTIONS (3)
  - Administration site swelling [Recovered/Resolved]
  - Pain in extremity [Not Recovered/Not Resolved]
  - Infusion related reaction [Recovering/Resolving]

NARRATIVE: CASE EVENT DATE: 20181120
